FAERS Safety Report 5754879-1 (Version None)
Quarter: 2008Q2

REPORT INFORMATION
  Report Type: 
  Country: None (occurrence: None)
  Receive Date: 20080527
  Receipt Date: 20080514
  Transmission Date: 20081010
  Serious: Yes (Hospitalization, Other)
  Sender: FDA-Public Use
  Company Number: TPA2008A00709

PATIENT
  Age: 77 Year
  Sex: Female
  Weight: 46.2669 kg

DRUGS (7)
  1. ACTOS [Suspect]
     Indication: TYPE 2 DIABETES MELLITUS
     Dosage: 30 MG, 1 IN 1 D, PER ORAL
     Dates: end: 20050101
  2. ACTOS [Suspect]
     Indication: TYPE 2 DIABETES MELLITUS
     Dosage: 30 MG, 1 IN 1 D, PER ORAL
     Dates: start: 20050101
  3. XELODA [Concomitant]
  4. SYNTHROID [Concomitant]
  5. EXTRA STRENGTH TYLENOL [Concomitant]
  6. XANAX (ALPRAZOLAM) (0.25 MILLIGRAM) [Concomitant]
  7. UNKNOWN CHEMOTHERAPY DRUG (OTHER CHEMOTHERAPEUTICS) [Concomitant]

REACTIONS (11)
  - APPENDICITIS PERFORATED [None]
  - CHRONIC OBSTRUCTIVE PULMONARY DISEASE [None]
  - DYSPHONIA [None]
  - GANGRENE [None]
  - HEADACHE [None]
  - JOINT SWELLING [None]
  - LACRIMATION INCREASED [None]
  - METASTASES TO LIVER [None]
  - METASTASES TO LYMPH NODES [None]
  - PERIPHERAL COLDNESS [None]
  - WEIGHT FLUCTUATION [None]
